FAERS Safety Report 18361267 (Version 2)
Quarter: 2020Q4

REPORT INFORMATION
  Report Type: Spontaneous
  Country: FR (occurrence: FR)
  Receive Date: 20201008
  Receipt Date: 20201221
  Transmission Date: 20210114
  Serious: Yes (Other)
  Sender: FDA-Public Use
  Company Number: FR-MYLANLABS-2020M1084434

PATIENT
  Age: 71 Year
  Sex: Female

DRUGS (5)
  1. IMIPENEM [Suspect]
     Active Substance: IMIPENEM
     Indication: DRUG PROVOCATION TEST
     Dosage: UNK
  2. CEFPODOXIME [Concomitant]
     Active Substance: CEFPODOXIME
     Indication: DRUG PROVOCATION TEST
     Dosage: UNK
  3. PIPERACILLIN/TAZOBACTAM [Suspect]
     Active Substance: PIPERACILLIN SODIUM\TAZOBACTAM SODIUM
     Indication: ANTIBIOTIC PROPHYLAXIS
     Dosage: UNK, TID
     Route: 065
  4. AMOXICILLIN/CLAVULANIC ACID [Suspect]
     Active Substance: AMOXICILLIN\CLAVULANIC ACID
     Indication: PROPHYLAXIS
     Dosage: UNK
     Route: 042
  5. CEFTRIAXONE. [Concomitant]
     Active Substance: CEFTRIAXONE
     Indication: DRUG PROVOCATION TEST
     Dosage: UNK

REACTIONS (3)
  - Rash maculo-papular [Recovered/Resolved with Sequelae]
  - Type IV hypersensitivity reaction [Recovered/Resolved]
  - Therapeutic product cross-reactivity [Unknown]
